FAERS Safety Report 5693257-0 (Version None)
Quarter: 2008Q2

REPORT INFORMATION
  Report Type: 
  Country: None (occurrence: None)
  Receive Date: 20080403
  Receipt Date: 20080325
  Transmission Date: 20081010
  Serious: Yes (Hospitalization)
  Sender: FDA-Public Use
  Company Number: PHHO2008CA04031

PATIENT
  Age: 46 Year
  Sex: Male
  Weight: 70 kg

DRUGS (4)
  1. ASAPHEN [Concomitant]
     Indication: PROPHYLAXIS
     Dates: start: 20021205
  2. LOSEC I.V. [Concomitant]
     Dates: start: 20030709
  3. FOLIC ACID [Concomitant]
     Indication: PROPHYLAXIS
     Dates: start: 19800101
  4. EXJADE [Suspect]
     Indication: HAEMOSIDEROSIS
     Dosage: 1375 MG, QD
     Route: 048
     Dates: start: 20030601

REACTIONS (3)
  - ABDOMINAL PAIN UPPER [None]
  - HAEMOGLOBIN DECREASED [None]
  - MELAENA [None]
